FAERS Safety Report 16294483 (Version 1)
Quarter: 2019Q2

REPORT INFORMATION
  Report Type: Spontaneous
  Country: US (occurrence: US)
  Receive Date: 20190509
  Receipt Date: 20190509
  Transmission Date: 20190711
  Serious: No
  Sender: FDA-Public Use
  Company Number: US-ROCHE-2093427

PATIENT
  Age: 83 Year
  Sex: Male

DRUGS (1)
  1. ESBRIET [Suspect]
     Active Substance: PIRFENIDONE
     Indication: IDIOPATHIC PULMONARY FIBROSIS
     Dosage: THERAPY RECEIVED DATE: 22/MAR/2017
     Route: 048
     Dates: start: 20170112

REACTIONS (4)
  - Skin exfoliation [Unknown]
  - Skin discolouration [Not Recovered/Not Resolved]
  - Asthenia [Unknown]
  - Headache [Unknown]

NARRATIVE: CASE EVENT DATE: 201711
